FAERS Safety Report 12690182 (Version 2)
Quarter: 2016Q3

REPORT INFORMATION
  Report Type: Spontaneous
  Country: CH (occurrence: CH)
  Receive Date: 20160826
  Receipt Date: 20160830
  Transmission Date: 20161109
  Serious: Yes (Hospitalization)
  Sender: FDA-Public Use
  Company Number: CH-TEVA-686883ISR

PATIENT
  Age: 76 Year
  Sex: Male

DRUGS (7)
  1. LITHIOFOR [Suspect]
     Active Substance: LITHIUM SULFATE
     Indication: BIPOLAR DISORDER RELAPSE PROPHYLAXIS
     Dosage: 1 DOSAGE FORMS DAILY; 0.5 DOSAGE FORMS EACH IN THE MORNING AND IN THE EVENING
     Route: 048
     Dates: start: 20160720
  2. LITHIOFOR [Suspect]
     Active Substance: LITHIUM SULFATE
     Dosage: DOSAGE AND START DATE UNKNOWN, LONG-TERM THERAPY
     Route: 048
     Dates: end: 20160714
  3. TENORETIC MITE [Concomitant]
     Dosage: 1 DF = 50 MG ATENOLOL AND 12,5 MG CHLORTALIDONE
     Route: 048
  4. LITHIOFOR [Suspect]
     Active Substance: LITHIUM SULFATE
     Dosage: 1320 MILLIGRAM DAILY; 2 DOSAGE FORMS OF 660 MG EACH AT LUNCH TIME
     Route: 048
     Dates: start: 20160716, end: 20160718
  5. ESCITALOPRAM [Suspect]
     Active Substance: ESCITALOPRAM OXALATE
     Indication: DEPRESSION
     Dosage: 10 MILLIGRAM DAILY;
     Route: 048
     Dates: start: 20160704, end: 20160714
  6. LITHIOFOR [Suspect]
     Active Substance: LITHIUM SULFATE
     Dosage: .5 DOSAGE FORMS DAILY; 0.5 DOSAGE FORMS IN THE EVENING
     Route: 048
     Dates: start: 20160719, end: 20160719
  7. KCL [Concomitant]
     Active Substance: POTASSIUM CHLORIDE
     Route: 065

REACTIONS (1)
  - Extrapyramidal disorder [Recovering/Resolving]

NARRATIVE: CASE EVENT DATE: 20160714
